FAERS Safety Report 12077417 (Version 2)
Quarter: 2016Q1

REPORT INFORMATION
  Report Type: Spontaneous
  Country: FI (occurrence: FI)
  Receive Date: 20160215
  Receipt Date: 20160329
  Transmission Date: 20160526
  Serious: Yes (Other)
  Sender: FDA-Public Use
  Company Number: FI-ELI_LILLY_AND_COMPANY-FI201602001812

PATIENT
  Sex: Female

DRUGS (2)
  1. XEPLION [Concomitant]
     Active Substance: PALIPERIDONE PALMITATE
     Dosage: UNK, UNKNOWN
     Route: 065
  2. ZYPADHERA [Suspect]
     Active Substance: OLANZAPINE PAMOATE
     Indication: SCHIZOPHRENIA
     Dosage: 300 MG, EVERY TWO WEEKS
     Route: 030

REACTIONS (8)
  - Dysstasia [Unknown]
  - Dizziness [Unknown]
  - Aphasia [Unknown]
  - Balance disorder [Unknown]
  - Blood glucose decreased [Recovered/Resolved]
  - Eye movement disorder [Unknown]
  - Dysarthria [Unknown]
  - Sedation [Unknown]

NARRATIVE: CASE EVENT DATE: 20160128
